FAERS Safety Report 9302906 (Version 1)
Quarter: 2013Q2

REPORT INFORMATION
  Report Type: Spontaneous
  Country: CA (occurrence: CA)
  Receive Date: 20130522
  Receipt Date: 20130522
  Transmission Date: 20140414
  Serious: Yes (Hospitalization)
  Sender: FDA-Public Use
  Company Number: CA-ELI_LILLY_AND_COMPANY-CA201305004948

PATIENT
  Sex: Female

DRUGS (10)
  1. ADCIRCA [Suspect]
  2. VOLIBRIS [Concomitant]
     Dosage: 10 MG, QD
     Dates: start: 20111007
  3. COUMADIN [Concomitant]
  4. EFFEXOR [Concomitant]
  5. LANOXIN [Concomitant]
  6. LASIX [Concomitant]
  7. COZAAR [Concomitant]
  8. IRON [Concomitant]
  9. ROBAXACET [Concomitant]
  10. OXYGEN [Concomitant]

REACTIONS (1)
  - Rib fracture [Unknown]
